FAERS Safety Report 19119537 (Version 1)
Quarter: 2021Q2

REPORT INFORMATION
  Report Type: Spontaneous
  Country: GB (occurrence: GB)
  Receive Date: 20210412
  Receipt Date: 20210412
  Transmission Date: 20210717
  Serious: Yes (Other)
  Sender: FDA-Public Use
  Company Number: GB-ADVANZ PHARMA-202103002479

PATIENT

DRUGS (1)
  1. PREDNISOLONE. [Suspect]
     Active Substance: PREDNISOLONE
     Route: 048

REACTIONS (3)
  - Vomiting [Recovered/Resolved]
  - Disseminated varicella zoster vaccine virus infection [Recovered/Resolved]
  - Abdominal pain upper [Recovered/Resolved]
